FAERS Safety Report 7061628-6 (Version None)
Quarter: 2010Q4

REPORT INFORMATION
  Report Type: 
  Country: None (occurrence: None)
  Receive Date: 20101026
  Receipt Date: 20101020
  Transmission Date: 20110411
  Serious: Yes (Hospitalization)
  Sender: FDA-Public Use
  Company Number: JP-SANOFI-AVENTIS-2010SA058483

PATIENT
  Age: 56 Year
  Sex: Male

DRUGS (9)
  1. ALLEGRA [Suspect]
     Route: 048
     Dates: start: 20100826, end: 20100928
  2. RIZABEN [Suspect]
     Route: 048
     Dates: start: 20100803, end: 20100929
  3. AZELASTINE HCL [Concomitant]
     Route: 048
     Dates: start: 20091202
  4. DIOVAN [Concomitant]
     Route: 048
     Dates: start: 20100519
  5. EPLERENONE [Concomitant]
     Route: 048
     Dates: start: 20090905
  6. OMEPRAZOLE [Concomitant]
     Route: 048
     Dates: start: 20090825
  7. 8-HOUR BAYER [Concomitant]
     Route: 048
     Dates: start: 20090825
  8. CRESTOR [Concomitant]
     Route: 048
     Dates: start: 20090825
  9. CINAL [Concomitant]
     Route: 048
     Dates: start: 20100803, end: 20100929

REACTIONS (1)
  - JAUNDICE [None]
